FAERS Safety Report 13090814 (Version 1)
Quarter: 2017Q1

REPORT INFORMATION
  Report Type: Spontaneous
  Country: US (occurrence: US)
  Receive Date: 20170106
  Receipt Date: 20170106
  Transmission Date: 20170428
  Serious: No
  Sender: FDA-Public Use
  Company Number: US-ASTRAZENECA-2016SF36011

PATIENT

DRUGS (3)
  1. NAUSEA MEDIACTION [Concomitant]
  2. VICTOZA [Concomitant]
     Active Substance: LIRAGLUTIDE
  3. FARXIGA [Suspect]
     Active Substance: DAPAGLIFLOZIN PROPANEDIOL
     Route: 048

REACTIONS (5)
  - Feeling abnormal [Unknown]
  - Nervousness [Unknown]
  - Hypersomnia [Unknown]
  - Blood glucose increased [Unknown]
  - Flatulence [Unknown]
